FAERS Safety Report 7636105-1 (Version None)
Quarter: 2011Q3

REPORT INFORMATION
  Report Type: 
  Country: None (occurrence: None)
  Receive Date: 20110726
  Receipt Date: 20110718
  Transmission Date: 20111222
  Serious: Yes (Death)
  Sender: FDA-Public Use
  Company Number: US-ACTELION-A-US2011-51141

PATIENT

DRUGS (3)
  1. TRACLEER [Suspect]
     Indication: PULMONARY ARTERIAL HYPERTENSION
     Dosage: 125 MG, BID
     Route: 048
     Dates: start: 20070901, end: 20110630
  2. PLAVIX [Concomitant]
  3. VENTAVIS [Suspect]
     Indication: PULMONARY ARTERIAL HYPERTENSION
     Dosage: UNK
     Route: 055
     Dates: start: 20101031, end: 20110630

REACTIONS (1)
  - CARDIO-RESPIRATORY ARREST [None]
